FAERS Safety Report 15477486 (Version 1)
Quarter: 2018Q4

REPORT INFORMATION
  Report Type: Report from Study
  Country: US (occurrence: US)
  Receive Date: 20181009
  Receipt Date: 20181009
  Transmission Date: 20190205
  Serious: Yes (Death)
  Sender: FDA-Public Use
  Company Number: US-IPSEN BIOPHARMACEUTICALS, INC.-2018-15467

PATIENT
  Sex: Female

DRUGS (19)
  1. DULOXETINE. [Concomitant]
     Active Substance: DULOXETINE
  2. HYDROCODONE BITARTRATE AND ACETAMINOPHEN [Concomitant]
     Active Substance: ACETAMINOPHEN\HYDROCODONE BITARTRATE
  3. LORAZEPAM. [Concomitant]
     Active Substance: LORAZEPAM
  4. CABOMETYX [Suspect]
     Active Substance: CABOZANTINIB S-MALATE
     Indication: MIXED HEPATOCELLULAR CHOLANGIOCARCINOMA
  5. LOSARTAN/HCT [Concomitant]
     Active Substance: HYDROCHLOROTHIAZIDE\LOSARTAN POTASSIUM
  6. ONDANSETRON [Concomitant]
     Active Substance: ONDANSETRON
  7. DICLOFENAC [Concomitant]
     Active Substance: DICLOFENAC
  8. FUROSEMIDE. [Concomitant]
     Active Substance: FUROSEMIDE
  9. SMZ-TMP DS [Concomitant]
     Active Substance: SULFAMETHOXAZOLE\TRIMETHOPRIM
  10. CABOMETYX [Suspect]
     Active Substance: CABOZANTINIB S-MALATE
     Indication: BONE CANCER
  11. METFORMIN [Concomitant]
     Active Substance: METFORMIN HYDROCHLORIDE
  12. SIMVASTATIN. [Concomitant]
     Active Substance: SIMVASTATIN
  13. VALACYCLOVIR [Concomitant]
     Active Substance: VALACYCLOVIR HYDROCHLORIDE
  14. PROCHLORPERAZINE. [Concomitant]
     Active Substance: PROCHLORPERAZINE
  15. STOOL SOFTENER (DOCUSATE) [Concomitant]
     Active Substance: DOCUSATE
  16. CABOMETYX [Suspect]
     Active Substance: CABOZANTINIB S-MALATE
     Indication: RENAL CANCER
     Route: 048
     Dates: end: 20180817
  17. LOSARTAN POTASSIUM. [Concomitant]
     Active Substance: LOSARTAN POTASSIUM
  18. DIAZEPAM. [Concomitant]
     Active Substance: DIAZEPAM
  19. OXYCODONE [Concomitant]
     Active Substance: OXYCODONE

REACTIONS (14)
  - Pleural effusion [Unknown]
  - Nausea [Unknown]
  - Malignant neoplasm progression [Unknown]
  - Neck pain [Unknown]
  - Dyspnoea exertional [Unknown]
  - Orthopnoea [Unknown]
  - Productive cough [Unknown]
  - Wheezing [Unknown]
  - Back pain [Unknown]
  - Death [Fatal]
  - Lung consolidation [Unknown]
  - Contusion [Not Recovered/Not Resolved]
  - Lymphadenopathy mediastinal [Unknown]
  - Diarrhoea [Not Recovered/Not Resolved]
